FAERS Safety Report 7359576-7 (Version None)
Quarter: 2011Q1

REPORT INFORMATION
  Report Type: 
  Country: None (occurrence: None)
  Receive Date: 20110317
  Receipt Date: 20100325
  Transmission Date: 20110831
  Serious: No
  Sender: FDA-Public Use
  Company Number: US-PFIZER INC-2010038089

PATIENT
  Sex: Female
  Weight: 52.6 kg

DRUGS (3)
  1. AMLODIPINE BESYLATE [Suspect]
     Indication: HYPERTENSION
     Dosage: 5 MG, 1X/DAY
     Route: 048
     Dates: start: 20100211, end: 20100322
  2. PRILOSEC [Concomitant]
     Indication: ULCER
     Dosage: UNK MG, 2X/DAY
     Route: 048
  3. METOPROLOL [Concomitant]
     Indication: HEART RATE ABNORMAL
     Dosage: 25 MG, 2X/DAY
     Route: 048

REACTIONS (2)
  - RASH [None]
  - OEDEMA PERIPHERAL [None]
